FAERS Safety Report 13430373 (Version 3)
Quarter: 2021Q2

REPORT INFORMATION
  Report Type: Report from Study
  Country: US (occurrence: US)
  Receive Date: 20170412
  Receipt Date: 20210406
  Transmission Date: 20210716
  Serious: Yes (Other)
  Sender: FDA-Public Use
  Company Number: US-BIOGEN-2011BI029420

PATIENT
  Age: 47 Year
  Sex: Female
  Weight: 86.26 kg

DRUGS (5)
  1. AVONEX PEN [Suspect]
     Active Substance: INTERFERON BETA-1A
     Indication: MULTIPLE SCLEROSIS
     Route: 030
     Dates: start: 201211, end: 20140427
  2. AVONEX [Suspect]
     Active Substance: INTERFERON BETA-1A
     Indication: MULTIPLE SCLEROSIS
     Route: 030
     Dates: start: 20110109
  3. AVONEX [Suspect]
     Active Substance: INTERFERON BETA-1A
     Route: 030
     Dates: start: 20110109, end: 20140427
  4. AVONEX [Suspect]
     Active Substance: INTERFERON BETA-1A
     Route: 030
     Dates: start: 20101228, end: 20140427
  5. AVONEX [Suspect]
     Active Substance: INTERFERON BETA-1A
     Indication: MULTIPLE SCLEROSIS
     Route: 030
     Dates: start: 20110109, end: 201211

REACTIONS (16)
  - Bladder cancer [Recovered/Resolved]
  - Blood urine present [Recovered/Resolved]
  - Onychoclasis [Recovered/Resolved]
  - Cognitive disorder [Not Recovered/Not Resolved]
  - Pruritus [Recovered/Resolved]
  - Nasal congestion [Recovered/Resolved]
  - Pyrexia [Recovered/Resolved]
  - Multiple sclerosis [Recovered/Resolved]
  - Headache [Recovered/Resolved]
  - Abnormal loss of weight [Not Recovered/Not Resolved]
  - Fatigue [Recovered/Resolved]
  - Knee arthroplasty [Recovered/Resolved]
  - Night sweats [Unknown]
  - Hypersensitivity [Recovered/Resolved]
  - Lymphadenopathy [Not Recovered/Not Resolved]
  - Stress [Unknown]

NARRATIVE: CASE EVENT DATE: 201102
